FAERS Safety Report 4899091-3 (Version None)
Quarter: 2006Q1

REPORT INFORMATION
  Report Type: 
  Country: None (occurrence: None)
  Receive Date: 20060130
  Receipt Date: 20060117
  Transmission Date: 20060701
  Serious: Yes (Hospitalization)
  Sender: FDA-Public Use
  Company Number: 2006010641

PATIENT
  Age: 51 Year
  Sex: Female

DRUGS (6)
  1. XANAX [Suspect]
     Indication: ILL-DEFINED DISORDER
     Dosage: 1.5 MG (0.5 MG, 3 IN 1 D) ORAL
     Route: 048
  2. GINKOR FORT (GINKGO BILOBA, HEPTAMINOL HYDROCHLORIDE) [Suspect]
     Indication: ILL-DEFINED DISORDER
     Dosage: 4 DF (2 IN 1 D) ORAL
     Route: 048
  3. VERAPAMIL [Suspect]
     Indication: HYPERTENSION
     Dosage: 240 MG ORAL
     Route: 048
  4. ZOCOR [Suspect]
     Indication: HYPERLIPIDAEMIA
     Dosage: 20 MG (20 MG, 1 IN 1 D) ORAL
     Route: 048
  5. ATHYMIL (MIANSERIN HYDROCHLORIDE) [Suspect]
     Indication: DEPRESSION
     Dosage: 30 MG (30 MG, 1 IN 1 D) ORAL
     Route: 048
  6. ASPIRIN [Suspect]
     Indication: ILL-DEFINED DISORDER
     Dosage: 160 MG (160 MG, 1 IN 1 D) ORAL
     Route: 048
     Dates: start: 20051207, end: 20051211

REACTIONS (4)
  - BLOOD CREATININE DECREASED [None]
  - BLOOD PRESSURE DECREASED [None]
  - COLITIS [None]
  - RECTAL HAEMORRHAGE [None]
